FAERS Safety Report 9112958 (Version 1)
Quarter: 2013Q1

REPORT INFORMATION
  Report Type: Spontaneous
  Country: US (occurrence: US)
  Receive Date: 20130211
  Receipt Date: 20130211
  Transmission Date: 20140127
  Serious: Yes (Other)
  Sender: FDA-Public Use
  Company Number: US-BAYER-2012-125431

PATIENT
  Sex: 0

DRUGS (20)
  1. XARELTO [Suspect]
     Indication: CEREBROVASCULAR ACCIDENT PROPHYLAXIS
     Dosage: 20 MG, UNK
     Dates: start: 20121029, end: 20121115
  2. XARELTO [Interacting]
     Indication: ATRIAL FIBRILLATION
     Dosage: UNK
     Dates: start: 20121226
  3. XARELTO [Interacting]
     Indication: CEREBROVASCULAR ACCIDENT PROPHYLAXIS
     Dosage: UNK
     Dates: start: 20121128
  4. ACETYLSALICYLIC ACID({=100 MG) [Interacting]
     Dosage: 81 MG, QD
     Route: 065
     Dates: start: 20121115
  5. METOPROLOL [Concomitant]
     Dosage: 25 MG, BID
     Route: 065
     Dates: start: 20121115
  6. LEVOTHYROXINE [Concomitant]
     Dosage: 88 MG, QD
     Route: 065
     Dates: start: 20121128
  7. LEVOTHYROXINE [Concomitant]
     Dosage: 88 MG, QD
     Route: 065
     Dates: start: 20121226
  8. LEVOTHYROXINE [Concomitant]
     Dosage: 88 MG, QD
     Route: 065
     Dates: start: 20121115
  9. DRONEDARONE [Concomitant]
     Dosage: 400 MG, BID
     Route: 065
     Dates: start: 20121115
  10. DRONEDARONE [Concomitant]
     Dosage: 400 MG, BID
     Route: 065
     Dates: start: 20121226
  11. DRONEDARONE [Concomitant]
     Dosage: 400 MG, BID
     Route: 065
     Dates: start: 20121128
  12. PANTOPRAZOLE [Concomitant]
     Dosage: 40 MG, QD
     Route: 065
     Dates: start: 20121115
  13. PANTOPRAZOLE [Concomitant]
     Dosage: 40 MG, UNK
     Route: 065
     Dates: start: 20121128
  14. PANTOPRAZOLE [Concomitant]
     Dosage: 40 MG, UNK
     Route: 065
     Dates: start: 20121226
  15. METFORMIN [Concomitant]
     Dosage: 500 MG, QD
     Route: 065
     Dates: start: 20121226
  16. METFORMIN [Concomitant]
     Dosage: 500 MG, QD
     Route: 065
     Dates: start: 20121128
  17. METFORMIN [Concomitant]
     Dosage: 500 MG, QD
     Route: 065
     Dates: start: 20121115
  18. LOSARTAN [Concomitant]
     Dosage: 50 MG, BID
     Route: 065
     Dates: start: 20121115
  19. LOSARTAN [Concomitant]
     Dosage: 50 MG, BID
     Route: 065
     Dates: start: 20121128
  20. LOSARTAN [Concomitant]
     Dosage: 50 MG, BID
     Route: 065
     Dates: start: 20121226

REACTIONS (1)
  - Haemorrhage urinary tract [Recovered/Resolved]
